FAERS Safety Report 20963602 (Version 2)
Quarter: 2023Q2

REPORT INFORMATION
  Report Type: Spontaneous
  Country: US (occurrence: US)
  Receive Date: 20220615
  Receipt Date: 20230525
  Transmission Date: 20230721
  Serious: Yes (Hospitalization)
  Sender: FDA-Public Use
  Company Number: US-PFIZER INC-202200456297

PATIENT
  Age: 80 Year
  Sex: Male
  Weight: 99.79 kg

DRUGS (1)
  1. VYNDAMAX [Suspect]
     Active Substance: TAFAMIDIS
     Indication: Cardiac amyloidosis
     Dosage: 61 MG, 1X/DAY (IN THE MORNING)
     Dates: start: 202202

REACTIONS (3)
  - Urinary tract infection [Unknown]
  - Heart rate decreased [Unknown]
  - Pyrexia [Unknown]
